FAERS Safety Report 20168066 (Version 2)
Quarter: 2021Q4

REPORT INFORMATION
  Report Type: Other
  Country: US (occurrence: None)
  Receive Date: 20211210
  Receipt Date: 20211218
  Transmission Date: 20220303
  Serious: Yes (Hospitalization)
  Sender: FDA-Public Use
  Company Number: US-ROCHE-2974385

PATIENT
  Age: 67 Year
  Sex: Male

DRUGS (6)
  1. OCREVUS [Suspect]
     Active Substance: OCRELIZUMAB
     Indication: Relapsing multiple sclerosis
     Route: 065
  2. CARBAMAZEPINE [Concomitant]
     Active Substance: CARBAMAZEPINE
     Route: 048
     Dates: start: 20200508
  3. ASPIRIN [Concomitant]
     Active Substance: ASPIRIN
     Route: 048
  4. SYNTHROID [Concomitant]
     Active Substance: LEVOTHYROXINE SODIUM
     Route: 048
     Dates: start: 20171115
  5. MELOXICAM [Concomitant]
     Active Substance: MELOXICAM
     Route: 048
     Dates: start: 20151102
  6. FISH OIL [Concomitant]
     Active Substance: FISH OIL
     Route: 048

REACTIONS (1)
  - Sepsis [Unknown]

NARRATIVE: CASE EVENT DATE: 20211001
